FAERS Safety Report 8371884-X (Version None)
Quarter: 2012Q2

REPORT INFORMATION
  Report Type: 
  Country: None (occurrence: None)
  Receive Date: 20120518
  Receipt Date: 20120511
  Transmission Date: 20120825
  Serious: Yes (Death, Hospitalization, Disabling, Other)
  Sender: FDA-Public Use
  Company Number: JP-ROCHE-1031287

PATIENT
  Sex: Female
  Weight: 70 kg

DRUGS (17)
  1. IRINOTECAN HYDROCHLORIDE [Suspect]
     Route: 041
     Dates: start: 20110811, end: 20110922
  2. FLUOROURACIL [Concomitant]
     Indication: RECTAL CANCER METASTATIC
     Dosage: DOSAGE IS UNCERTAIN.
     Route: 040
     Dates: start: 20110428, end: 20110428
  3. IRINOTECAN HYDROCHLORIDE [Suspect]
     Dosage: DOSAGE IS UNCERTAIN.
     Route: 041
     Dates: start: 20110519, end: 20110101
  4. LOBU [Suspect]
     Indication: CANCER PAIN
     Route: 048
     Dates: start: 20101118, end: 20111101
  5. LEVOLEUCOVORIN CALCIUM [Concomitant]
     Indication: RECTAL CANCER METASTATIC
     Dosage: DOSAGE IS UNCERTAIN.
     Route: 041
     Dates: start: 20110428, end: 20110428
  6. DECADRON [Suspect]
     Indication: PRODUCT USED FOR UNKNOWN INDICATION
     Dosage: DOSAGE IS UNCERTAIN.
     Route: 065
  7. LEVOLEUCOVORIN CALCIUM [Concomitant]
     Dosage: DOSAGE IS UNCERTAIN.
     Route: 041
     Dates: start: 20110519, end: 20110101
  8. VECTIBIX [Concomitant]
     Indication: RECTAL CANCER METASTATIC
     Dosage: DOSAGE IS UNCERTAIN.
     Route: 041
     Dates: start: 20110519, end: 20110811
  9. FLUOROURACIL [Concomitant]
     Dosage: DOSAGE IS UNCERTAIN.
     Route: 040
     Dates: start: 20110519, end: 20110101
  10. AVASTIN [Suspect]
     Route: 041
     Dates: start: 20100805, end: 20110106
  11. FLUOROURACIL [Concomitant]
     Dosage: DOSAGE IS UNCERTAIN.
     Route: 041
     Dates: start: 20110428, end: 20110401
  12. AVASTIN [Suspect]
     Route: 041
     Dates: start: 20110317, end: 20110428
  13. TS-1 [Suspect]
     Indication: RECTAL CANCER METASTATIC
     Dosage: IT IS TWO ADMINISTERING WEEKLY HOLIDAY MEDICINE FOR TWO WEEKS.
     Route: 048
     Dates: start: 20110811, end: 20110921
  14. IRINOTECAN HYDROCHLORIDE [Suspect]
     Indication: RECTAL CANCER METASTATIC
     Dosage: DOSAGE IS UNCERTAIN.
     Route: 041
     Dates: start: 20110428, end: 20110428
  15. FLUOROURACIL [Concomitant]
     Dosage: DOSAGE IS UNCERTAIN.
     Route: 041
     Dates: start: 20110519, end: 20110101
  16. AVASTIN [Suspect]
     Route: 041
     Dates: start: 20110811, end: 20110922
  17. AVASTIN [Suspect]
     Indication: RECTAL CANCER METASTATIC
     Route: 041
     Dates: start: 20091104, end: 20100421

REACTIONS (6)
  - GASTRIC ULCER [None]
  - SUBCUTANEOUS ABSCESS [None]
  - ANAL FISTULA [None]
  - RECTAL PERFORATION [None]
  - OESOPHAGEAL CANDIDIASIS [None]
  - DISEASE PROGRESSION [None]
